FAERS Safety Report 9314260 (Version 1)
Quarter: 2013Q2

REPORT INFORMATION
  Report Type: Spontaneous
  Country: GB (occurrence: None)
  Receive Date: 20130522
  Receipt Date: 20130522
  Transmission Date: 20140414
  Serious: Yes (Other)
  Sender: FDA-Public Use
  Company Number: KAD201305-000572

PATIENT
  Age: 30 Year
  Sex: Female

DRUGS (2)
  1. RIBAVIRIN (RIBAVIRIN) [Suspect]
     Indication: HEPATITIS C
     Route: 048
     Dates: start: 20120918
  2. INCIVO [Suspect]
     Indication: HEPATITIS C
     Route: 048
     Dates: start: 20120918

REACTIONS (3)
  - Anaemia [None]
  - Nasopharyngitis [None]
  - Dizziness [None]
